FAERS Safety Report 19698081 (Version 1)
Quarter: 2021Q3

REPORT INFORMATION
  Report Type: Spontaneous
  Country: US (occurrence: US)
  Receive Date: 20210813
  Receipt Date: 20210813
  Transmission Date: 20211014
  Serious: No
  Sender: FDA-Public Use
  Company Number: US-SPECGX-T202002377

PATIENT
  Sex: Male

DRUGS (26)
  1. ONDANSETRON [Concomitant]
     Active Substance: ONDANSETRON
     Indication: NAUSEA
     Dosage: 4 MILLIGRAM, PRN (EVERY 8 HOURS)
     Route: 048
  2. CARISOPRODOL. [Concomitant]
     Active Substance: CARISOPRODOL
     Dosage: 350 MILLIGRAM, PRN (THREE TIMES A DAY)
     Route: 048
  3. GABAPENTIN. [Concomitant]
     Active Substance: GABAPENTIN
     Dosage: 600 MILLIGRAM, PRN (1 CAPSULE THREE TIMES A DAY)
     Route: 048
  4. METHADONE [Concomitant]
     Active Substance: METHADONE HYDROCHLORIDE
     Dosage: 10 MILLIGRAM, BID
     Route: 048
  5. OXYCODONE [Concomitant]
     Active Substance: OXYCODONE
     Indication: PRODUCT USED FOR UNKNOWN INDICATION
     Dosage: ONE TABLET 7 TIMES A DAY AND HALF TABLET DAILY AS NEEDED
     Route: 065
  6. ROXICODONE [Suspect]
     Active Substance: OXYCODONE HYDROCHLORIDE
     Indication: PRODUCT USED FOR UNKNOWN INDICATION
     Dosage: UNK
     Route: 065
  7. OXYCODONE [Suspect]
     Active Substance: OXYCODONE
     Indication: PRODUCT USED FOR UNKNOWN INDICATION
     Dosage: 30 MILLIGRAM (EVERY SIX TO EIGHT HOURS)
     Route: 048
  8. CARISOPRODOL. [Concomitant]
     Active Substance: CARISOPRODOL
     Dosage: 350 MILLIGRAM, TID
     Route: 048
  9. CLONIDINE HCL [Concomitant]
     Active Substance: CLONIDINE HYDROCHLORIDE
     Indication: WITHDRAWAL SYNDROME
     Dosage: 0.1 MILLIGRAM, PRN (THREE TIMES A DAY)
     Route: 065
  10. METHADONE [Concomitant]
     Active Substance: METHADONE HYDROCHLORIDE
     Dosage: 10 MILLIGRAM, QD
     Route: 048
  11. METHADONE [Concomitant]
     Active Substance: METHADONE HYDROCHLORIDE
     Dosage: 10 MILLIGRAM, PRN (DAILY)
     Route: 048
  12. LYRICA [Concomitant]
     Active Substance: PREGABALIN
     Indication: PRODUCT USED FOR UNKNOWN INDICATION
     Dosage: 200 MILLIGRAM, QD (FOUR CAPSULES)
     Route: 048
  13. OXYCODONE [Concomitant]
     Active Substance: OXYCODONE
     Dosage: 60 MILLIGRAM, PRN (FOUR TIMES A DAY)
     Route: 065
  14. ONDANSETRON [Concomitant]
     Active Substance: ONDANSETRON
     Indication: VOMITING
  15. VENTOLIN HFA [Concomitant]
     Active Substance: ALBUTEROL SULFATE
     Indication: PRODUCT USED FOR UNKNOWN INDICATION
     Dosage: 2 DOSAGE FORM, QID (2 PUFFS)
  16. GABAPENTIN. [Concomitant]
     Active Substance: GABAPENTIN
     Indication: PAIN
     Dosage: 600 MILLIGRAM, PRN (2 CAPSULES FOUR TIMES A DAY)
     Route: 048
  17. OXYCODONE [Concomitant]
     Active Substance: OXYCODONE
     Dosage: 2 TABLETS THREE TIMES A DAY AS DIRECTED AND HALF TABLET DAILY
     Route: 048
  18. METHADONE [Concomitant]
     Active Substance: METHADONE HYDROCHLORIDE
     Indication: PRODUCT USED FOR UNKNOWN INDICATION
     Dosage: 10 MILLIGRAM, PRN (TWO TIMES A DAY)
     Route: 065
  19. OXYCODONE [Concomitant]
     Active Substance: OXYCODONE
     Dosage: 210 MILLIGRAM, PRN (ONE TABLET 7 TIMES A DAY)
     Route: 065
  20. OMECLAMOX?PAK [Concomitant]
     Active Substance: AMOXICILLIN\CLARITHROMYCIN\OMEPRAZOLE
     Indication: PRODUCT USED FOR UNKNOWN INDICATION
     Dosage: UNK
     Route: 065
  21. FENTANYL. [Concomitant]
     Active Substance: FENTANYL
     Indication: PRODUCT USED FOR UNKNOWN INDICATION
     Dosage: 1 PATCH EVERY 72 HOURS
     Route: 062
  22. NUCYNTA [Suspect]
     Active Substance: TAPENTADOL HYDROCHLORIDE
     Indication: PRODUCT USED FOR UNKNOWN INDICATION
     Dosage: UNK
     Route: 065
  23. CARISOPRODOL. [Concomitant]
     Active Substance: CARISOPRODOL
     Indication: PRODUCT USED FOR UNKNOWN INDICATION
     Dosage: 350 MILLIGRAM
     Route: 065
  24. MOVANTIK [Concomitant]
     Active Substance: NALOXEGOL OXALATE
     Indication: PRODUCT USED FOR UNKNOWN INDICATION
     Dosage: 25 MILLIGRAM, QHS
     Route: 048
  25. VENTOLIN HFA [Concomitant]
     Active Substance: ALBUTEROL SULFATE
     Dosage: 2 DOSAGE FORM, PRN ((2 PUFFS FOUR TIMES A DAY)
  26. LIDOCAINE. [Concomitant]
     Active Substance: LIDOCAINE
     Indication: PRODUCT USED FOR UNKNOWN INDICATION
     Dosage: APPLY TWO TIMES A DAY TO AFFECTED AREA
     Route: 061

REACTIONS (5)
  - Loss of personal independence in daily activities [Unknown]
  - Drug ineffective [Unknown]
  - Fatigue [Unknown]
  - Diarrhoea [Unknown]
  - Withdrawal syndrome [Unknown]
